FAERS Safety Report 23581487 (Version 1)
Quarter: 2024Q1

REPORT INFORMATION
  Report Type: Spontaneous
  Country: US (occurrence: None)
  Receive Date: 20240229
  Receipt Date: 20240229
  Transmission Date: 20240410
  Serious: Yes (Death, Hospitalization)
  Sender: FDA-Public Use
  Company Number: None

PATIENT
  Sex: Female
  Weight: 58.5 kg

DRUGS (4)
  1. AMIODARONE [Suspect]
     Active Substance: AMIODARONE
     Indication: Atrial fibrillation
     Dates: start: 20190612, end: 20230207
  2. AMIODARONE [Suspect]
     Active Substance: AMIODARONE
     Indication: Hyperthyroidism
  3. METHIMAZOLE [Suspect]
     Active Substance: METHIMAZOLE
     Dates: start: 20231206, end: 20240111
  4. METHIMAZOLE [Suspect]
     Active Substance: METHIMAZOLE

REACTIONS (10)
  - Tremor [None]
  - Dysgraphia [None]
  - Cardiac failure congestive [None]
  - Atrial fibrillation [None]
  - Symptom recurrence [None]
  - Hyperthyroidism [None]
  - Hyperthyroidism [None]
  - Agranulocytosis [None]
  - Sudden cardiac death [None]
  - Product use complaint [None]
